FAERS Safety Report 4633853-2 (Version None)
Quarter: 2005Q2

REPORT INFORMATION
  Report Type: 
  Country: None (occurrence: None)
  Receive Date: 20050412
  Receipt Date: 20050412
  Transmission Date: 20051028
  Serious: Yes (Life-Threatening, Other)
  Sender: FDA-Public Use
  Company Number: None

PATIENT
  Age: 47 Year
  Sex: Male
  Weight: 154.223 kg

DRUGS (3)
  1. DYCLONINE 0.1% COMBE, INC. -CEPACOL SPRAY- [Suspect]
     Indication: PHARYNGOLARYNGEAL PAIN
     Dosage: 4 SPRAYS FOUR TIMES/DAY BUCCAL
     Route: 002
     Dates: start: 20040509, end: 20040510
  2. GLYBURIDE [Concomitant]
  3. RICOLA [Concomitant]

REACTIONS (6)
  - ANGIONEUROTIC OEDEMA [None]
  - NASAL SINUS DRAINAGE [None]
  - OROPHARYNGEAL SWELLING [None]
  - PHARYNGOLARYNGEAL PAIN [None]
  - SPEECH DISORDER [None]
  - UPPER RESPIRATORY TRACT INFECTION [None]
